FAERS Safety Report 24155320 (Version 1)
Quarter: 2024Q3

REPORT INFORMATION
  Report Type: Spontaneous
  Country: ZA (occurrence: None)
  Receive Date: 20240731
  Receipt Date: 20240731
  Transmission Date: 20241017
  Serious: Yes (Hospitalization)
  Sender: ASTRAZENECA
  Company Number: 2024A167757

PATIENT
  Sex: Female

DRUGS (4)
  1. BUDESONIDE\FORMOTEROL [Suspect]
     Active Substance: BUDESONIDE\FORMOTEROL
     Indication: Asthma
     Dosage: 120 UG/INHAL, UNKNOWN UNKNOWN
     Route: 055
  2. SPIRACTIN [Concomitant]
     Indication: Hypertension
     Dosage: 25.0MG UNKNOWN
     Route: 048
  3. PANTOCID [Concomitant]
     Indication: Ulcer
     Dosage: 20.0MG UNKNOWN
     Route: 048
  4. ETORICOXIB [Concomitant]
     Active Substance: ETORICOXIB
     Indication: Pain
     Dosage: 60.0MG UNKNOWN
     Route: 048

REACTIONS (3)
  - Spinal disorder [Unknown]
  - Neuralgia [Unknown]
  - Lung neoplasm malignant [Unknown]
